FAERS Safety Report 7011484-7 (Version None)
Quarter: 2010Q3

REPORT INFORMATION
  Report Type: 
  Country: None (occurrence: None)
  Receive Date: 20100923
  Receipt Date: 20090204
  Transmission Date: 20110219
  Serious: No
  Sender: FDA-Public Use
  Company Number: US-WYE-H07533209

PATIENT
  Sex: Female

DRUGS (6)
  1. PREMARIN [Suspect]
     Indication: PRODUCT USED FOR UNKNOWN INDICATION
     Dosage: 0.5 GM TWICE WEEKLY
     Route: 067
     Dates: start: 20081101, end: 20081216
  2. VERAPAMIL [Concomitant]
  3. NASONEX [Concomitant]
  4. DIOVAN [Concomitant]
  5. METRONIDAZOLE [Interacting]
     Indication: FUNGAL INFECTION
  6. LIPITOR [Concomitant]

REACTIONS (5)
  - DRUG INTERACTION [None]
  - FEELING ABNORMAL [None]
  - FIBRIN D DIMER INCREASED [None]
  - PALPITATIONS [None]
  - PARAESTHESIA [None]
